FAERS Safety Report 11132229 (Version 1)
Quarter: 2015Q2

REPORT INFORMATION
  Report Type: Spontaneous
  Country: FI (occurrence: FI)
  Receive Date: 20150522
  Receipt Date: 20150522
  Transmission Date: 20150821
  Serious: Yes (Hospitalization)
  Sender: FDA-Public Use
  Company Number: FI-PFIZER INC-2015169678

PATIENT
  Age: 69 Year
  Sex: Male

DRUGS (1)
  1. DIFLUCAN [Suspect]
     Active Substance: FLUCONAZOLE
     Indication: FUNGAL INFECTION
     Dosage: 150 MG, WEEKLY
     Dates: start: 20150415

REACTIONS (1)
  - Status epilepticus [Recovered/Resolved with Sequelae]

NARRATIVE: CASE EVENT DATE: 20150415
